FAERS Safety Report 5590299-0 (Version None)
Quarter: 2008Q1

REPORT INFORMATION
  Report Type: 
  Country: None (occurrence: None)
  Receive Date: 20080114
  Receipt Date: 20080108
  Transmission Date: 20080703
  Serious: Yes (Other)
  Sender: FDA-Public Use
  Company Number: US-SANOFI-SYNTHELABO-A03200800074

PATIENT
  Age: 67 Year
  Sex: Female

DRUGS (3)
  1. ELOXATIN [Suspect]
     Indication: DRUG USE FOR UNKNOWN INDICATION
     Route: 042
     Dates: start: 20070101, end: 20070101
  2. ELOXATIN [Suspect]
     Route: 042
     Dates: start: 20070101, end: 20070101
  3. ELOXATIN [Suspect]
     Route: 042
     Dates: start: 20071231, end: 20071231

REACTIONS (2)
  - LARYNGEAL OBSTRUCTION [None]
  - LARYNGOSPASM [None]
